FAERS Safety Report 10168301 (Version 2)
Quarter: 2014Q2

REPORT INFORMATION
  Report Type: Spontaneous
  Country: IN (occurrence: IN)
  Receive Date: 20140512
  Receipt Date: 20140512
  Transmission Date: 20141212
  Serious: Yes (Other)
  Sender: FDA-Public Use
  Company Number: IN-009507513-1405IND004375

PATIENT
  Age: 67 Year
  Sex: Male
  Weight: 90 kg

DRUGS (3)
  1. JANUMET [Suspect]
     Dosage: STRENGTH REPORTED AS 1000MG, BID
     Route: 048
     Dates: end: 20140505
  2. METFORMIN [Concomitant]
     Dosage: UNK, BID
     Route: 048
  3. GLIPIRIDE [Concomitant]
     Dosage: UNK, QD
     Route: 048

REACTIONS (2)
  - Abdominal pain [Recovered/Resolved]
  - Lipase increased [Recovered/Resolved]
